FAERS Safety Report 23682366 (Version 2)
Quarter: 2024Q2

REPORT INFORMATION
  Report Type: Spontaneous
  Country: US (occurrence: US)
  Receive Date: 20240328
  Receipt Date: 20240613
  Transmission Date: 20240716
  Serious: No
  Sender: FDA-Public Use
  Company Number: US-Calliditas-2024CAL00473

PATIENT
  Age: 17 Year
  Sex: Female

DRUGS (1)
  1. TARPEYO [Suspect]
     Active Substance: BUDESONIDE
     Indication: IgA nephropathy
     Dosage: 16MG (4MG CAPSULES) ONCE DAILY
     Route: 048
     Dates: start: 20231227, end: 20240531

REACTIONS (5)
  - Polymenorrhoea [Unknown]
  - Heavy menstrual bleeding [Unknown]
  - Weight increased [Unknown]
  - Acne [Unknown]
  - Off label use [Unknown]
